FAERS Safety Report 7033700-8 (Version None)
Quarter: 2010Q4

REPORT INFORMATION
  Report Type: 
  Country: None (occurrence: None)
  Receive Date: 20101007
  Receipt Date: 20101005
  Transmission Date: 20110411
  Serious: Yes (Death)
  Sender: FDA-Public Use
  Company Number: JP-ELI_LILLY_AND_COMPANY-JP200906006538

PATIENT
  Sex: Male
  Weight: 51 kg

DRUGS (22)
  1. ALIMTA [Suspect]
     Indication: PLEURAL MESOTHELIOMA MALIGNANT
     Dosage: 800 MG, OTHER
     Route: 042
     Dates: start: 20090512, end: 20090512
  2. CARBOPLATIN [Concomitant]
     Indication: PLEURAL MESOTHELIOMA MALIGNANT
     Dosage: 300 MG, OTHER
     Route: 042
     Dates: start: 20090512, end: 20090512
  3. PANVITAN [Concomitant]
     Dosage: 1 G, DAILY (1/D)
     Route: 048
     Dates: start: 20090503
  4. METHYCOBAL [Concomitant]
     Dosage: 1 MG, OTHER
     Route: 030
     Dates: start: 20090503, end: 20090503
  5. OLMETEC [Concomitant]
     Indication: HYPERTENSION
     Dosage: 20 MG, DAILY (1/D)
     Route: 048
  6. DIART [Concomitant]
     Indication: HYPERTENSION
     Dosage: 60 MG, DAILY (1/D)
     Route: 048
  7. PARIET [Concomitant]
     Indication: PROPHYLAXIS
     Dosage: 20 MG, DAILY (1/D)
     Route: 048
  8. ARTIST [Concomitant]
     Indication: HYPERTENSION
     Dosage: 2.5 MG, DAILY (1/D)
     Route: 048
  9. LOXONIN [Concomitant]
     Indication: CHEST PAIN
     Dosage: 60 MG, 3/D
     Route: 048
     Dates: start: 20090402
  10. CYTOTEC [Concomitant]
     Indication: PROPHYLAXIS
     Dosage: 200 UG, 3/D
     Route: 048
     Dates: start: 20090402
  11. MEDICON [Concomitant]
     Indication: PROPHYLAXIS
     Dosage: 15 MG, DAILY (1/D)
     Route: 048
     Dates: start: 20090508
  12. STARSIS [Concomitant]
     Indication: DIABETES MELLITUS
     Dosage: 90 MG, 3/D
     Route: 048
     Dates: start: 20090513
  13. METFORMIN HCL [Concomitant]
     Indication: DIABETES MELLITUS
     Dosage: 250 MG, 3/D
     Route: 048
     Dates: start: 20090513
  14. DECADRON [Concomitant]
     Indication: CHEST PAIN
     Dosage: 1.5 MG, DAILY (1/D)
     Route: 048
     Dates: start: 20090515
  15. OXYCONTIN [Concomitant]
     Indication: CHEST PAIN
     Dosage: 10 MG, DAILY (1/D)
     Route: 048
     Dates: start: 20090518
  16. NOVAMIN [Concomitant]
     Indication: PROPHYLAXIS
     Dosage: 15 MG, DAILY (1/D)
     Route: 048
     Dates: start: 20090518
  17. MAGMITT [Concomitant]
     Indication: CONSTIPATION PROPHYLAXIS
     Dosage: 1320 MG, DAILY (1/D)
     Route: 048
     Dates: start: 20090518
  18. OXINORM [Concomitant]
     Indication: CHEST PAIN
     Dosage: 5 MG, DAILY (1/D)
     Route: 048
     Dates: start: 20090518
  19. AMOBAN [Concomitant]
     Indication: INSOMNIA
     Dosage: 10 MG, AS NEEDED
     Route: 048
     Dates: start: 20090521
  20. MYSLEE [Concomitant]
     Indication: INSOMNIA
     Dosage: 10 MG, AS NEEDED
     Route: 048
     Dates: start: 20090521
  21. DUROTEP [Concomitant]
     Indication: CHEST PAIN
     Dosage: 2.1 MG, OTHER
     Route: 062
     Dates: start: 20090525, end: 20090525
  22. DUROTEP [Concomitant]
     Dosage: 4.2 MG, DAILY (1/D)
     Route: 062
     Dates: start: 20090526

REACTIONS (2)
  - INTERSTITIAL LUNG DISEASE [None]
  - OFF LABEL USE [None]
